FAERS Safety Report 15120394 (Version 1)
Quarter: 2018Q3

REPORT INFORMATION
  Report Type: Spontaneous
  Country: SA (occurrence: SA)
  Receive Date: 20180709
  Receipt Date: 20180709
  Transmission Date: 20181010
  Serious: Yes (Congenital Anomaly, Other)
  Sender: FDA-Public Use
  Company Number: SA-GLAXOSMITHKLINE-SA2018GSK121429

PATIENT
  Sex: Male

DRUGS (4)
  1. MYCOPHENOLATE MOFETIL. [Suspect]
     Active Substance: MYCOPHENOLATE MOFETIL
  2. TACROLIMUS. [Suspect]
     Active Substance: TACROLIMUS
  3. LAMIVUDINE. [Suspect]
     Active Substance: LAMIVUDINE
  4. PREDNISOLONE. [Suspect]
     Active Substance: PREDNISOLONE

REACTIONS (5)
  - Foetal exposure during pregnancy [Unknown]
  - Oesophageal atresia [Unknown]
  - Polyhydramnios [Unknown]
  - Microtia [Unknown]
  - Tracheo-oesophageal fistula [Unknown]
